FAERS Safety Report 5944016-2 (Version None)
Quarter: 2008Q4

REPORT INFORMATION
  Report Type: 
  Country: None (occurrence: None)
  Receive Date: 20081106
  Receipt Date: 20081024
  Transmission Date: 20090506
  Serious: Yes (Hospitalization)
  Sender: FDA-Public Use
  Company Number: FI-ABBOTT-08P-055-0480285-00

PATIENT
  Age: 43 Year
  Sex: Female

DRUGS (8)
  1. CLARITHROMYCIN [Suspect]
     Indication: RHINITIS
  2. CLARITHROMYCIN [Interacting]
     Indication: BRONCHITIS
  3. ZAFIRLUKAST [Interacting]
     Indication: RHINITIS
  4. ZAFIRLUKAST [Interacting]
     Indication: BRONCHITIS
  5. EBASTINE [Interacting]
     Indication: DRUG USE FOR UNKNOWN INDICATION
  6. BUDESONIDE [Interacting]
     Indication: DRUG USE FOR UNKNOWN INDICATION
  7. FLUTICASONE PROPIONATE [Concomitant]
     Indication: DRUG USE FOR UNKNOWN INDICATION
  8. SALMETEROL [Concomitant]
     Indication: DRUG USE FOR UNKNOWN INDICATION

REACTIONS (2)
  - DELIRIUM [None]
  - DRUG INTERACTION [None]
